FAERS Safety Report 5366742-9 (Version None)
Quarter: 2007Q2

REPORT INFORMATION
  Report Type: 
  Country: None (occurrence: None)
  Receive Date: 20070622
  Receipt Date: 20061006
  Transmission Date: 20071010
  Serious: No
  Sender: FDA-Public Use
  Company Number: US-ASTRAZENECA-2006UW17868

PATIENT
  Age: 57 Year
  Sex: Female
  Weight: 90.7 kg

DRUGS (2)
  1. RHINOCORT [Suspect]
     Indication: SINUS CONGESTION
     Route: 045
     Dates: start: 20060908, end: 20060901
  2. NEXIUM [Concomitant]

REACTIONS (5)
  - NASAL CONGESTION [None]
  - SENSATION OF PRESSURE [None]
  - SWELLING [None]
  - SWELLING FACE [None]
  - VISION BLURRED [None]
